FAERS Safety Report 18243528 (Version 2)
Quarter: 2020Q3

REPORT INFORMATION
  Report Type: Report from Study
  Country: HU (occurrence: HU)
  Receive Date: 20200908
  Receipt Date: 20200922
  Transmission Date: 20201103
  Serious: Yes (Hospitalization)
  Sender: FDA-Public Use
  Company Number: HU-JNJFOC-20200841818

PATIENT
  Age: 70 Year
  Sex: Male
  Weight: 85 kg

DRUGS (9)
  1. ERDAFITINIB. [Suspect]
     Active Substance: ERDAFITINIB
     Indication: TRANSITIONAL CELL CARCINOMA
     Route: 048
     Dates: start: 20200610, end: 20200714
  2. COVERCARD [Concomitant]
     Active Substance: AMLODIPINE BESYLATE\PERINDOPRIL ARGININE
     Indication: HYPERTENSION
     Route: 065
     Dates: start: 2007
  3. ERDAFITINIB. [Suspect]
     Active Substance: ERDAFITINIB
     Dosage: MED KIT NO 149066, 149229, 186288, 186290
     Route: 048
     Dates: start: 20200805, end: 20200822
  4. PROPAFENONE. [Concomitant]
     Active Substance: PROPAFENONE
     Indication: ATRIAL FIBRILLATION
     Route: 065
     Dates: start: 2007
  5. ENTEROBENE [Concomitant]
     Indication: DIARRHOEA
     Route: 065
     Dates: start: 20200814
  6. FRONTIN [Concomitant]
     Active Substance: ALPRAZOLAM
     Indication: PROPHYLAXIS
     Route: 065
     Dates: start: 20200609
  7. CONCOR [Concomitant]
     Active Substance: BISOPROLOL FUMARATE
     Indication: HYPERTENSION
     Route: 065
     Dates: start: 2007
  8. MILURIT [Concomitant]
     Active Substance: ALLOPURINOL
     Indication: PROPHYLAXIS
     Route: 065
     Dates: start: 20190402
  9. DIFLAM [Concomitant]
     Indication: ABDOMINAL PAIN
     Route: 065
     Dates: start: 20200427

REACTIONS (2)
  - Stomatitis [Not Recovered/Not Resolved]
  - Blood creatinine increased [Not Recovered/Not Resolved]

NARRATIVE: CASE EVENT DATE: 20200825
